FAERS Safety Report 22394305 (Version 1)
Quarter: 2023Q2

REPORT INFORMATION
  Report Type: Spontaneous
  Country: CN (occurrence: CN)
  Receive Date: 20230601
  Receipt Date: 20230601
  Transmission Date: 20230722
  Serious: Yes (Other)
  Sender: FDA-Public Use
  Company Number: CN-AMGEN-CHNSP2023092478

PATIENT
  Age: 73 Year
  Sex: Female
  Weight: 60 kg

DRUGS (4)
  1. REPATHA [Suspect]
     Active Substance: EVOLOCUMAB
     Indication: Lipids increased
     Dosage: 420 MILLIGRAM 1
     Route: 058
     Dates: start: 20230322, end: 20230322
  2. SEMAGLUTIDE [Suspect]
     Active Substance: SEMAGLUTIDE
     Indication: Blood glucose increased
     Dosage: 0.25 MILLIGRAM 1
     Route: 058
     Dates: start: 20230322, end: 20230322
  3. CLOPIDOGREL BISULFATE [Suspect]
     Active Substance: CLOPIDOGREL BISULFATE
     Indication: Platelet aggregation abnormal
     Dosage: 75 MILLIGRAM, QD
     Route: 048
     Dates: start: 20230321, end: 20230321
  4. ASPIRIN [Suspect]
     Active Substance: ASPIRIN
     Indication: Platelet aggregation abnormal
     Dosage: 100 MILLIGRAM, QD
     Route: 048
     Dates: start: 20230321, end: 20230321

REACTIONS (3)
  - Haemorrhage subcutaneous [Recovering/Resolving]
  - Dizziness [Recovering/Resolving]
  - Injection site reaction [Recovering/Resolving]

NARRATIVE: CASE EVENT DATE: 20230324
